FAERS Safety Report 22313905 (Version 1)
Quarter: 2023Q2

REPORT INFORMATION
  Report Type: Spontaneous
  Country: JP (occurrence: JP)
  Receive Date: 20230512
  Receipt Date: 20230512
  Transmission Date: 20230721
  Serious: Yes (Other)
  Sender: FDA-Public Use
  Company Number: JP-BAYER-2023A064252

PATIENT
  Age: 7 Decade
  Sex: Male

DRUGS (1)
  1. EYLEA [Suspect]
     Active Substance: AFLIBERCEPT
     Indication: Age-related macular degeneration
     Dosage: EVERY MONTH, 3 CONSECUTIVE DOSES, SOLUTION FOR INJECTION, 40MG/ML

REACTIONS (1)
  - Macular oedema [Unknown]
